FAERS Safety Report 11350864 (Version 1)
Quarter: 2015Q3

REPORT INFORMATION
  Report Type: Spontaneous
  Country: US (occurrence: US)
  Receive Date: 20150807
  Receipt Date: 20150807
  Transmission Date: 20151125
  Serious: No
  Sender: FDA-Public Use
  Company Number: US-JNJFOC-20140708214

PATIENT
  Age: 33 Year
  Sex: Male
  Weight: 79.38 kg

DRUGS (4)
  1. MULTIVITAMINS [Concomitant]
     Active Substance: VITAMINS
     Indication: GENERAL PHYSICAL CONDITION
     Dosage: 2-3 YEARS
     Route: 065
  2. CREATINE [Concomitant]
     Active Substance: CREATINE
     Indication: GENERAL PHYSICAL CONDITION
     Dosage: 2-3 YEARS
     Route: 065
  3. NATURAL SUPPLEMENTS [Concomitant]
     Indication: GENERAL PHYSICAL CONDITION
     Dosage: 2-3 YEARS
     Route: 065
  4. MENS ROGAINE EXTRA STRENGTH [Suspect]
     Active Substance: MINOXIDIL
     Indication: ALOPECIA
     Dosage: DOSAGE: LESS THAN A CAPFUL
     Route: 061

REACTIONS (3)
  - Pruritus [Unknown]
  - Product quality issue [Unknown]
  - Skin irritation [Recovered/Resolved]
